FAERS Safety Report 14948448 (Version 1)
Quarter: 2018Q2

REPORT INFORMATION
  Report Type: Spontaneous
  Country: FI (occurrence: FI)
  Receive Date: 20180529
  Receipt Date: 20180529
  Transmission Date: 20180711
  Serious: Yes (Other)
  Sender: FDA-Public Use
  Company Number: FI-BAYER-2017-202645

PATIENT
  Age: 36 Year
  Sex: Female

DRUGS (1)
  1. JAYDESS [Suspect]
     Active Substance: LEVONORGESTREL
     Dosage: 14 MCG/24HR, CONT
     Route: 015
     Dates: start: 201407, end: 20170621

REACTIONS (5)
  - Pregnancy with contraceptive device [None]
  - Drug ineffective [None]
  - Pyrexia [None]
  - Amniotic cavity infection [None]
  - Endometritis [None]

NARRATIVE: CASE EVENT DATE: 20170609
